FAERS Safety Report 10548320 (Version 1)
Quarter: 2014Q4

REPORT INFORMATION
  Report Type: Spontaneous
  Country: US (occurrence: None)
  Receive Date: 20141027
  Receipt Date: 20141027
  Transmission Date: 20150529
  Serious: No
  Sender: FDA-Public Use
  Company Number: None

PATIENT
  Age: 42 Year
  Sex: Female
  Weight: 54.43 kg

DRUGS (1)
  1. CETIRIZINE [Suspect]
     Active Substance: CETIRIZINE HYDROCHLORIDE
     Dosage: 1 PILL A DAY ONCE DAILY TAKEN BY MOUTH
     Route: 048

REACTIONS (6)
  - Anxiety [None]
  - Crying [None]
  - Emotional disorder [None]
  - Therapy cessation [None]
  - Pain [None]
  - Pruritus generalised [None]

NARRATIVE: CASE EVENT DATE: 20141023
